FAERS Safety Report 19498236 (Version 1)
Quarter: 2021Q3

REPORT INFORMATION
  Report Type: Spontaneous
  Country: PL (occurrence: PL)
  Receive Date: 20210706
  Receipt Date: 20210706
  Transmission Date: 20211014
  Serious: Yes (Other)
  Sender: FDA-Public Use
  Company Number: PL-PFIZER INC-2021751994

PATIENT
  Age: 59 Year
  Sex: Male
  Weight: 90 kg

DRUGS (10)
  1. VANCOMYCIN [Suspect]
     Active Substance: VANCOMYCIN
     Dosage: 1 G
     Route: 042
     Dates: start: 20181017, end: 20181017
  2. ZAHRON [Concomitant]
     Active Substance: ROSUVASTATIN CALCIUM
  3. GLUCOPHAGE [Concomitant]
     Active Substance: METFORMIN HYDROCHLORIDE
  4. SPIRONOL [Concomitant]
     Active Substance: SPIRONOLACTONE
  5. LEVOXA [Concomitant]
     Active Substance: LEVOFLOXACIN
  6. NEBILENIN [Concomitant]
  7. AXTIL [Concomitant]
     Active Substance: RAMIPRIL
  8. CORDARONE [Concomitant]
     Active Substance: AMIODARONE HYDROCHLORIDE
  9. FUROSEMID [Concomitant]
     Active Substance: FUROSEMIDE
  10. KALIPOZ [Concomitant]
     Active Substance: POTASSIUM CHLORIDE

REACTIONS (4)
  - Blood pressure decreased [Recovered/Resolved]
  - Anaphylactic shock [Unknown]
  - Cold sweat [Recovered/Resolved]
  - Altered state of consciousness [Recovered/Resolved]

NARRATIVE: CASE EVENT DATE: 20181017
